FAERS Safety Report 11706895 (Version 2)
Quarter: 2015Q4

REPORT INFORMATION
  Report Type: Spontaneous
  Country: US (occurrence: US)
  Receive Date: 20151104
  Receipt Date: 20151110
  Transmission Date: 20160304
  Serious: No
  Sender: FDA-Public Use
  Company Number: US-ELI_LILLY_AND_COMPANY-US201101001311

PATIENT
  Age: 69 Year
  Sex: Female

DRUGS (6)
  1. CARAFATE [Concomitant]
     Active Substance: SUCRALFATE
  2. CLONAZEPAN [Concomitant]
     Active Substance: CLONAZEPAM
  3. VITAMINS [Concomitant]
     Active Substance: VITAMINS
  4. ZOCOR [Concomitant]
     Active Substance: SIMVASTATIN
  5. NEXIUM [Concomitant]
     Active Substance: ESOMEPRAZOLE MAGNESIUM
  6. FORTEO [Suspect]
     Active Substance: TERIPARATIDE
     Indication: OSTEOPOROSIS
     Dosage: 20 UG, QD
     Dates: start: 201003, end: 20120320

REACTIONS (9)
  - Increased tendency to bruise [Unknown]
  - Peripheral swelling [Unknown]
  - Contusion [Unknown]
  - Muscle rupture [Unknown]
  - Ligament rupture [Unknown]
  - Mobility decreased [Unknown]
  - Arthralgia [Unknown]
  - Fall [Unknown]
  - Contusion [Unknown]

NARRATIVE: CASE EVENT DATE: 20101219
